FAERS Safety Report 4923908-7 (Version None)
Quarter: 2006Q1

REPORT INFORMATION
  Report Type: 
  Country: None (occurrence: None)
  Receive Date: 20060227
  Receipt Date: 20050829
  Transmission Date: 20060701
  Serious: Yes (Hospitalization)
  Sender: FDA-Public Use
  Company Number: US-MERCK-0508USA04643

PATIENT
  Age: 40 Year
  Sex: Female

DRUGS (1)
  1. VIOXX [Suspect]
     Route: 048
     Dates: start: 20020101, end: 20030101

REACTIONS (15)
  - ASTHMA [None]
  - BRONCHITIS [None]
  - DEPRESSION [None]
  - DRUG EXPOSURE DURING PREGNANCY [None]
  - HEADACHE [None]
  - LEUKOCYTOSIS [None]
  - MENINGITIS ASEPTIC [None]
  - MIGRAINE [None]
  - NAUSEA [None]
  - NECK PAIN [None]
  - PNEUMONIA [None]
  - PULMONARY EMBOLISM [None]
  - PYREXIA [None]
  - SINUS DISORDER [None]
  - VOMITING [None]
